FAERS Safety Report 12466464 (Version 1)
Quarter: 2016Q2

REPORT INFORMATION
  Report Type: Spontaneous
  Country: CA (occurrence: CA)
  Receive Date: 20160615
  Receipt Date: 20160615
  Transmission Date: 20160815
  Serious: Yes (Other)
  Sender: FDA-Public Use
  Company Number: CA-ROCHE-1775152

PATIENT
  Age: 83 Year
  Sex: Female

DRUGS (1)
  1. ACTEMRA [Suspect]
     Active Substance: TOCILIZUMAB
     Indication: RHEUMATOID ARTHRITIS
     Route: 042
     Dates: start: 201104, end: 201505

REACTIONS (3)
  - Toe amputation [Unknown]
  - Pneumonitis [Unknown]
  - Impaired healing [Unknown]

NARRATIVE: CASE EVENT DATE: 20151119
